FAERS Safety Report 4743491-9 (Version None)
Quarter: 2005Q3

REPORT INFORMATION
  Report Type: 
  Country: None (occurrence: None)
  Receive Date: 20050810
  Receipt Date: 20050810
  Transmission Date: 20060218
  Serious: Yes (Other)
  Sender: FDA-Public Use
  Company Number: None

PATIENT
  Age: 61 Year
  Sex: Female
  Weight: 78.4723 kg

DRUGS (2)
  1. MEPERIDINE 50 MG [Suspect]
     Indication: FIBROMYALGIA
     Dosage: 1/2 -1 Q 8-12 HRS
  2. MEPERIDINE 50 MG [Suspect]
     Indication: MYALGIA
     Dosage: 1/2 -1 Q 8-12 HRS

REACTIONS (1)
  - PRURITUS [None]
